FAERS Safety Report 9769337 (Version 1)
Quarter: 2013Q4

REPORT INFORMATION
  Report Type: Spontaneous
  Country: US (occurrence: None)
  Receive Date: 20131120
  Receipt Date: 20131120
  Transmission Date: 20140711
  Serious: Yes (Other)
  Sender: FDA-Public Use
  Company Number: US-BIOTEST-T 470/13

PATIENT
  Age: 70 Year
  Sex: Female

DRUGS (3)
  1. BIVIGAM [Suspect]
     Indication: PRODUCT USED FOR UNKNOWN INDICATION
     Route: 041
     Dates: start: 20131111, end: 20131111
  2. ANTIHYPERTENSIVES [Concomitant]
  3. DIURETICS [Concomitant]

REACTIONS (10)
  - Infusion related reaction [None]
  - Hypotension [None]
  - Disorientation [None]
  - Feeling abnormal [None]
  - Feeling abnormal [None]
  - Dizziness [None]
  - Fatigue [None]
  - Headache [None]
  - Product quality issue [None]
  - Product quality issue [None]
